FAERS Safety Report 9033126 (Version 1)
Quarter: 2013Q1

REPORT INFORMATION
  Report Type: Spontaneous
  Country: US (occurrence: US)
  Receive Date: 20130128
  Receipt Date: 20130128
  Transmission Date: 20140127
  Serious: No
  Sender: FDA-Public Use
  Company Number: US-MYLANLABS-2011S1025242

PATIENT
  Age: 53 Year
  Sex: Female

DRUGS (2)
  1. EXTENDED PHENYTOIN SODIUM CAPSULES, USP [Suspect]
     Indication: CONVULSION
     Route: 048
     Dates: start: 20111201, end: 20111205
  2. CALCIUM WITH VITAMIN D [Concomitant]

REACTIONS (3)
  - Oedema peripheral [Not Recovered/Not Resolved]
  - Erythema [Not Recovered/Not Resolved]
  - Pruritus [Not Recovered/Not Resolved]
